FAERS Safety Report 20323874 (Version 1)
Quarter: 2022Q1

REPORT INFORMATION
  Report Type: Spontaneous
  Country: US (occurrence: US)
  Receive Date: 20220111
  Receipt Date: 20220111
  Transmission Date: 20220424
  Serious: No
  Sender: FDA-Public Use
  Company Number: US-BAYER-2022P000024

PATIENT
  Age: 34 Year
  Sex: Female

DRUGS (1)
  1. MIRENA [Suspect]
     Active Substance: LEVONORGESTREL
     Indication: Contraception
     Dosage: 20?G/DAY
     Route: 015
     Dates: start: 20210708

REACTIONS (1)
  - Pelvic pain [Recovering/Resolving]
